FAERS Safety Report 6838411-7 (Version None)
Quarter: 2010Q3

REPORT INFORMATION
  Report Type: 
  Country: None (occurrence: None)
  Receive Date: 20100713
  Receipt Date: 20070611
  Transmission Date: 20110219
  Serious: No
  Sender: FDA-Public Use
  Company Number: US-PFIZER INC-2007049093

PATIENT
  Sex: Female
  Weight: 50 kg

DRUGS (10)
  1. CHANTIX [Suspect]
     Indication: SMOKING CESSATION THERAPY
     Dates: start: 20070521
  2. OMEPRAZOLE [Concomitant]
     Indication: GASTRIC DISORDER
  3. NEXIUM [Concomitant]
     Indication: GASTRIC DISORDER
  4. FISH OIL [Concomitant]
  5. PLAVIX [Concomitant]
  6. ACETYLSALICYLIC ACID [Concomitant]
  7. SYNTHROID [Concomitant]
  8. LANOXIN [Concomitant]
  9. TOPROL-XL [Concomitant]
  10. ZOCOR [Concomitant]

REACTIONS (1)
  - VOMITING [None]
